FAERS Safety Report 20471146 (Version 1)
Quarter: 2022Q1

REPORT INFORMATION
  Report Type: Spontaneous
  Country: AR (occurrence: AR)
  Receive Date: 20220214
  Receipt Date: 20220214
  Transmission Date: 20220423
  Serious: Yes (Life-Threatening)
  Sender: FDA-Public Use
  Company Number: AR-PFIZER INC-202200228463

PATIENT
  Age: 57 Year
  Sex: Female

DRUGS (2)
  1. XELJANZ [Suspect]
     Active Substance: TOFACITINIB CITRATE
     Indication: Rheumatoid arthritis
     Dosage: 5 MG, 2X/DAY
     Dates: start: 20210301
  2. HERPES SIMPLEX VACCINE [Suspect]
     Active Substance: HERPES SIMPLEX VACCINE

REACTIONS (1)
  - Near death experience [Recovered/Resolved]

NARRATIVE: CASE EVENT DATE: 20210101
